FAERS Safety Report 6548633-0 (Version None)
Quarter: 2010Q1

REPORT INFORMATION
  Report Type: 
  Country: None (occurrence: None)
  Receive Date: 20100124
  Receipt Date: 20090922
  Transmission Date: 20100710
  Serious: No
  Sender: FDA-Public Use
  Company Number: US-ALLERGAN-0913241US

PATIENT
  Age: 66 Year
  Sex: Female

DRUGS (3)
  1. RESTASIS [Suspect]
     Indication: DRY EYE
     Dosage: 2 GTT, Q12H
     Route: 047
  2. SYSTANE [Concomitant]
  3. SYNTHROID [Concomitant]

REACTIONS (2)
  - EYE IRRITATION [None]
  - VISION BLURRED [None]
